FAERS Safety Report 15251031 (Version 4)
Quarter: 2021Q3

REPORT INFORMATION
  Report Type: Spontaneous
  Country: US (occurrence: US)
  Receive Date: 20180807
  Receipt Date: 20210728
  Transmission Date: 20211014
  Serious: Yes (Other)
  Sender: FDA-Public Use
  Company Number: US-TEVA-2018-US-938918

PATIENT
  Age: 84 Year
  Sex: Male

DRUGS (3)
  1. NAPROXEN. [Suspect]
     Active Substance: NAPROXEN
     Dosage: 500 MILLIGRAM DAILY;
     Route: 065
  2. NAPROXEN. [Suspect]
     Active Substance: NAPROXEN
     Indication: LUMBAR RADICULOPATHY
     Dosage: 660 MILLIGRAM DAILY;
     Route: 065
  3. FLECAINIDE [Concomitant]
     Active Substance: FLECAINIDE
     Indication: ATRIAL FIBRILLATION
     Route: 065

REACTIONS (2)
  - Interstitial lung disease [Recovered/Resolved]
  - Eosinophilic pneumonia [Recovered/Resolved]
